FAERS Safety Report 22090069 (Version 1)
Quarter: 2023Q1

REPORT INFORMATION
  Report Type: Spontaneous
  Country: JP (occurrence: JP)
  Receive Date: 20230313
  Receipt Date: 20230313
  Transmission Date: 20230418
  Serious: Yes (Death, Other)
  Sender: FDA-Public Use
  Company Number: JP-GSKJP-JP2022JPN110158AA

PATIENT

DRUGS (14)
  1. DAPRODUSTAT [Suspect]
     Active Substance: DAPRODUSTAT
     Indication: Cardiac failure chronic
     Dosage: 2 MG, QD
     Route: 048
     Dates: end: 20220721
  2. DAPRODUSTAT [Suspect]
     Active Substance: DAPRODUSTAT
     Indication: Nephrogenic anaemia
  3. DAPRODUSTAT [Suspect]
     Active Substance: DAPRODUSTAT
     Indication: Chronic kidney disease
  4. PLAVIX [Concomitant]
     Active Substance: CLOPIDOGREL BISULFATE
     Indication: Infarction
     Dosage: 75 MG, QD
     Route: 048
     Dates: end: 20220721
  5. VONOPRAZAN FUMARATE [Concomitant]
     Active Substance: VONOPRAZAN FUMARATE
     Indication: Infarction
     Dosage: 10 MG, QD
     Route: 048
     Dates: end: 20220721
  6. OLMESARTAN (OLMESARTAN MEDOXOMIL) [Concomitant]
     Indication: Hypertension
     Dosage: 40 MG, QD
     Route: 048
     Dates: end: 20220721
  7. AZELNIDIPINE [Concomitant]
     Active Substance: AZELNIDIPINE
     Indication: Hypertension
     Dosage: 16 MG, QD
     Route: 048
     Dates: end: 20220721
  8. SODIUM FERROUS CITRATE [Concomitant]
     Active Substance: SODIUM FERROUS CITRATE
     Indication: Anaemia
     Dosage: 50 MG, QD
     Route: 048
     Dates: end: 20220721
  9. SAMSCA [Concomitant]
     Active Substance: TOLVAPTAN
     Indication: Cardiac failure
     Dosage: 15 MG, QD
     Route: 048
     Dates: end: 20220721
  10. FUROSEMIDE [Concomitant]
     Active Substance: FUROSEMIDE
     Indication: Cardiac failure
     Dosage: 40 MG, QD
     Route: 048
     Dates: end: 20220713
  11. FUROSEMIDE [Concomitant]
     Active Substance: FUROSEMIDE
     Dosage: 20 MG, QD
     Route: 048
     Dates: end: 20220713
  12. SPIRONOLACTONE [Concomitant]
     Active Substance: SPIRONOLACTONE
     Indication: Cardiac failure
     Dosage: 25 MG, QD
     Route: 048
     Dates: end: 20220721
  13. AZOSEMIDE [Concomitant]
     Active Substance: AZOSEMIDE
     Indication: Cardiac failure
     Dosage: 60 MG, QD
     Route: 048
     Dates: start: 20220714, end: 20220721
  14. DAPAGLIFLOZIN [Concomitant]
     Active Substance: DAPAGLIFLOZIN
     Indication: Cardiac failure
     Dosage: 10 MG, QD
     Route: 048
     Dates: end: 20220721

REACTIONS (7)
  - Renal failure [Unknown]
  - Hyperkalaemia [Unknown]
  - Condition aggravated [Unknown]
  - Altered state of consciousness [Unknown]
  - Respiratory arrest [Unknown]
  - Dyspnoea [Unknown]
  - Cardiac failure chronic [Fatal]

NARRATIVE: CASE EVENT DATE: 20220714
